FAERS Safety Report 9335204 (Version 1)
Quarter: 2013Q2

REPORT INFORMATION
  Report Type: Spontaneous
  Country: BE (occurrence: BE)
  Receive Date: 20130606
  Receipt Date: 20130606
  Transmission Date: 20140414
  Serious: Yes (Other)
  Sender: FDA-Public Use
  Company Number: BE-GLAXOSMITHKLINE-B0897118A

PATIENT
  Sex: Female

DRUGS (7)
  1. REQUIP [Suspect]
     Indication: PARKINSONISM
     Dosage: 8MG PER DAY
     Route: 065
     Dates: end: 20130513
  2. AMLOR [Concomitant]
     Dosage: 1CAP IN THE MORNING
  3. ACTRAPID [Concomitant]
     Dosage: 12IU THREE TIMES PER DAY
  4. HUMALOG [Concomitant]
  5. LANTUS [Concomitant]
     Dosage: 10IU AT NIGHT
  6. ZESTORETIC [Concomitant]
     Dosage: 1TAB IN THE MORNING
  7. PROLOPA [Concomitant]
     Dosage: 1TAB FOUR TIMES PER DAY

REACTIONS (6)
  - Loss of consciousness [Recovering/Resolving]
  - Somnolence [Recovering/Resolving]
  - Syncope [Recovering/Resolving]
  - Feeling abnormal [Recovering/Resolving]
  - Balance disorder [Recovering/Resolving]
  - Hypoglycaemia [Recovering/Resolving]
